FAERS Safety Report 24699442 (Version 1)
Quarter: 2024Q4

REPORT INFORMATION
  Report Type: Spontaneous
  Country: JP (occurrence: JP)
  Receive Date: 20241205
  Receipt Date: 20241205
  Transmission Date: 20250115
  Serious: Yes (Death, Other)
  Sender: VIIV
  Company Number: JP-VIIV HEALTHCARE-JP2024JPN150630

PATIENT

DRUGS (6)
  1. LEXIVA [Suspect]
     Active Substance: FOSAMPRENAVIR CALCIUM
     Dosage: UNK
  2. VIREAD [Concomitant]
     Active Substance: TENOFOVIR DISOPROXIL FUMARATE
     Dosage: UNK
  3. EMTRIVA [Concomitant]
     Active Substance: EMTRICITABINE
     Dosage: UNK
  4. EFAVIRENZ [Concomitant]
     Active Substance: EFAVIRENZ
     Dosage: UNK
  5. DOXIL [Concomitant]
     Active Substance: DOXORUBICIN HYDROCHLORIDE
     Indication: Kaposi^s sarcoma
     Dosage: UNK
  6. GANCICLOVIR [Concomitant]
     Active Substance: GANCICLOVIR
     Dosage: UNK

REACTIONS (1)
  - Lymphoma [Fatal]
